FAERS Safety Report 6333268-5 (Version None)
Quarter: 2009Q3

REPORT INFORMATION
  Report Type: 
  Country: None (occurrence: None)
  Receive Date: 20090826
  Receipt Date: 20090812
  Transmission Date: 20100115
  Serious: Yes (Other)
  Sender: FDA-Public Use
  Company Number: ENT 2009-0074

PATIENT
  Age: 73 Year
  Sex: Female

DRUGS (7)
  1. COMTAN [Suspect]
     Indication: DRUG EFFECT DECREASED
     Dosage: ORAL;  100 MG/DAY, ORAL; 300 MG/DAY, ORAL
     Route: 048
     Dates: start: 20090425, end: 20090427
  2. COMTAN [Suspect]
     Indication: DRUG EFFECT DECREASED
     Dosage: ORAL;  100 MG/DAY, ORAL; 300 MG/DAY, ORAL
     Route: 048
     Dates: start: 20090607, end: 20090609
  3. COMTAN [Suspect]
     Indication: DRUG EFFECT DECREASED
     Dosage: ORAL;  100 MG/DAY, ORAL; 300 MG/DAY, ORAL
     Route: 048
     Dates: start: 20081001
  4. MADOPAR [Concomitant]
  5. BI-SOFROL [Concomitant]
  6. KETAS [Concomitant]
  7. ALFAROL [Concomitant]

REACTIONS (7)
  - CONSTIPATION [None]
  - DRY THROAT [None]
  - DYSKINESIA [None]
  - FREEZING PHENOMENON [None]
  - MYALGIA [None]
  - NEUROLEPTIC MALIGNANT SYNDROME [None]
  - PAIN [None]
